FAERS Safety Report 6132731-X (Version None)
Quarter: 2009Q1

REPORT INFORMATION
  Report Type: 
  Country: None (occurrence: None)
  Receive Date: 20090325
  Receipt Date: 20090325
  Transmission Date: 20090719
  Serious: Yes (Other)
  Sender: FDA-Public Use
  Company Number: None

PATIENT
  Age: 81 Year
  Sex: Male
  Weight: 68.4932 kg

DRUGS (1)
  1. XELODA [Suspect]

REACTIONS (2)
  - ABASIA [None]
  - BLISTER [None]
